FAERS Safety Report 9064026 (Version 1)
Quarter: 2013Q1

REPORT INFORMATION
  Report Type: Spontaneous
  Country: PR (occurrence: PR)
  Receive Date: 20130130
  Receipt Date: 20130130
  Transmission Date: 20140127
  Serious: Yes (Other)
  Sender: FDA-Public Use
  Company Number: PR-ABBOTT-12P-131-0949694-00

PATIENT
  Sex: Female
  Weight: 64.47 kg

DRUGS (6)
  1. HUMIRA 40 MG/0.8 ML PEN [Suspect]
     Indication: RHEUMATOID ARTHRITIS
     Route: 058
     Dates: start: 2005, end: 20120629
  2. HUMIRA 40 MG/0.8 ML PEN [Suspect]
     Dates: start: 20120714
  3. METHOTREXATE [Concomitant]
     Indication: RHEUMATOID ARTHRITIS
     Route: 048
     Dates: start: 2005
  4. FOLIC ACID [Concomitant]
     Indication: PRODUCT USED FOR UNKNOWN INDICATION
  5. OMEPRAZOLE [Concomitant]
     Indication: GASTROOESOPHAGEAL REFLUX DISEASE
     Route: 048
     Dates: start: 2010
  6. BIOTIN [Concomitant]
     Indication: ALOPECIA
     Route: 048
     Dates: start: 2010

REACTIONS (5)
  - Cataract [Recovering/Resolving]
  - Cataract [Not Recovered/Not Resolved]
  - Gastrooesophageal reflux disease [Not Recovered/Not Resolved]
  - Fungal infection [Not Recovered/Not Resolved]
  - Alopecia [Recovered/Resolved]
